FAERS Safety Report 4566633-7 (Version None)
Quarter: 2005Q1

REPORT INFORMATION
  Report Type: 
  Country: None (occurrence: None)
  Receive Date: 20050126
  Receipt Date: 20050110
  Transmission Date: 20050727
  Serious: Yes (Hospitalization)
  Sender: FDA-Public Use
  Company Number: USA041081367

PATIENT
  Age: 70 Year
  Sex: Female

DRUGS (1)
  1. FORTEO [Suspect]
     Indication: OSTEOPOROSIS
     Dates: start: 20041013

REACTIONS (8)
  - BALANCE DISORDER [None]
  - FALL [None]
  - FEELING ABNORMAL [None]
  - HYPOAESTHESIA [None]
  - INJECTION SITE HAEMORRHAGE [None]
  - INJECTION SITE PAIN [None]
  - PHARMACEUTICAL PRODUCT COMPLAINT [None]
  - WRIST FRACTURE [None]
